FAERS Safety Report 4775248-7 (Version None)
Quarter: 2005Q3

REPORT INFORMATION
  Report Type: 
  Country: None (occurrence: None)
  Receive Date: 20050921
  Receipt Date: 20050914
  Transmission Date: 20060218
  Serious: Yes (Other)
  Sender: FDA-Public Use
  Company Number: US-MERCK-0509USA02212

PATIENT
  Age: 62 Year
  Sex: Male

DRUGS (2)
  1. VIOXX [Suspect]
     Indication: ARTHRALGIA
     Route: 048
     Dates: start: 19990101, end: 20000101
  2. CELEBREX [Concomitant]
     Route: 065
     Dates: end: 20000101

REACTIONS (3)
  - CORONARY ARTERY DISEASE [None]
  - FATIGUE [None]
  - MYOCARDIAL INFARCTION [None]
